FAERS Safety Report 9299823 (Version 1)
Quarter: 2013Q1

REPORT INFORMATION
  Report Type: Spontaneous
  Country: US (occurrence: None)
  Receive Date: 20121227
  Receipt Date: 20121227
  Transmission Date: 20140127
  Serious: Yes (Disabling, Other)
  Sender: FDA-Public Use
  Company Number: PHEH2012US019710

PATIENT
  Age: 64 Year
  Sex: Female
  Weight: 67 kg

DRUGS (11)
  1. AFINITOR [Suspect]
     Indication: BREAST CANCER
     Route: 048
     Dates: start: 20120824
  2. AROMASIN (EXEMESTANE) [Concomitant]
  3. DENOSUMAB (DENOSUMAB) (RANMARK)) [Concomitant]
  4. CALCIUM (CALCIUM, COLECALCIFEROL) [Concomitant]
  5. MULTIVITAMINS (ASCORBIC ACID, ERGOCALCIFEROL, FOLIC ACID, NICOTINAMIDE, PATNTHENOL. RETINOL, RIBOFLAVIN, THIAMINE HYDROCHLORIDE) [Concomitant]
  6. VITAMIN C + E CAPLETS (ASCORBIC ACID, TOCOPHEROL) [Concomitant]
  7. MAGNESIUM (MAGNESIUM) [Concomitant]
  8. LYSINE (LYSINE) [Concomitant]
  9. LORSARTAN POTASSIUM (LOSARTAN POTASSIUM) [Concomitant]
  10. NAPROXEN (NAPROXEN) [Concomitant]
  11. FOSAMAX (ALENDRONATE SODIUM) [Concomitant]

REACTIONS (4)
  - Mucosal inflammation [None]
  - Rash [None]
  - Stomatitis [None]
  - Rash pruritic [None]
